FAERS Safety Report 13229845 (Version 4)
Quarter: 2017Q3

REPORT INFORMATION
  Report Type: Spontaneous
  Country: CA (occurrence: CA)
  Receive Date: 20170214
  Receipt Date: 20170815
  Transmission Date: 20171127
  Serious: Yes (Other)
  Sender: FDA-Public Use
  Company Number: CA-ORION CORPORATION ORION PHARMA-TREX2017-0430

PATIENT
  Age: 80 Year
  Sex: Male

DRUGS (3)
  1. FOLIC ACID. [Concomitant]
     Active Substance: FOLIC ACID
     Route: 048
  2. METHOTREXATE (TRADE NAME UNKNOWN) [Suspect]
     Active Substance: METHOTREXATE
     Indication: RHEUMATOID ARTHRITIS
     Route: 048
  3. MORPHINE [Concomitant]
     Active Substance: MORPHINE
     Route: 048

REACTIONS (5)
  - Hernia [Unknown]
  - Rheumatoid arthritis [Unknown]
  - Cytopenia [Unknown]
  - Gait disturbance [Unknown]
  - Drug effect incomplete [Unknown]
